FAERS Safety Report 4543819-9 (Version None)
Quarter: 2005Q1

REPORT INFORMATION
  Report Type: 
  Country: None (occurrence: None)
  Receive Date: 20050103
  Receipt Date: 20031023
  Transmission Date: 20050727
  Serious: Yes (Hospitalization)
  Sender: FDA-Public Use
  Company Number: GXKR2003US00533

PATIENT
  Age: 12 Year
  Sex: Female

DRUGS (4)
  1. IBUPROFEN [Suspect]
     Indication: CYSTIC FIBROSIS
     Dosage: 1000 MG (28,2M MG/KG), BID
     Dates: start: 19960920, end: 19970221
  2. DORNASE ALFA (DORNASE ALFA) [Concomitant]
  3. PANCRELIPASE (PANCRELIPASE) [Concomitant]
  4. MULTIVITAMIN (ASCORBIC ACID, ERGOCALCIFEROL, FOLIC ACID, NICOTINAMIDE, [Concomitant]

REACTIONS (4)
  - DUODENAL STENOSIS [None]
  - FOOD INTOLERANCE [None]
  - VOMITING [None]
  - WEIGHT DECREASED [None]
